FAERS Safety Report 4868722-6 (Version None)
Quarter: 2005Q4

REPORT INFORMATION
  Report Type: 
  Country: None (occurrence: None)
  Receive Date: 20051223
  Receipt Date: 20051212
  Transmission Date: 20060501
  Serious: Yes (Hospitalization, Other)
  Sender: FDA-Public Use
  Company Number: 2005168553

PATIENT
  Age: 13 Year
  Sex: Female

DRUGS (3)
  1. ZYVOX [Suspect]
     Indication: PERITONITIS
     Dosage: 1200 MG (600 MG, 2 IN 1 D)
     Dates: start: 20051101, end: 20051212
  2. IMMUNOSUPPRESSIVE AGENTS [Concomitant]
  3. CHEMOTHERAPY NOS [Concomitant]

REACTIONS (8)
  - AURA [None]
  - BURKITT'S LYMPHOMA [None]
  - CONVULSION [None]
  - HYPOAESTHESIA [None]
  - METASTASIS [None]
  - NUCLEAR MAGNETIC RESONANCE IMAGING BRAIN ABNORMAL [None]
  - PAIN [None]
  - PARAESTHESIA [None]
